FAERS Safety Report 11416903 (Version 4)
Quarter: 2015Q4

REPORT INFORMATION
  Report Type: Spontaneous
  Country: JP (occurrence: JP)
  Receive Date: 20150825
  Receipt Date: 20151027
  Transmission Date: 20160304
  Serious: Yes (Hospitalization)
  Sender: FDA-Public Use
  Company Number: JP-ABBVIE-15P-087-1451457-00

PATIENT
  Age: 14 Year
  Sex: Male

DRUGS (8)
  1. CLARITH [Suspect]
     Active Substance: CLARITHROMYCIN
     Indication: COUGH
     Route: 065
  2. CALONAL [Suspect]
     Active Substance: ACETAMINOPHEN
     Indication: INFLUENZA
     Route: 048
     Dates: start: 20150312
  3. COLDRIN [Suspect]
     Active Substance: ACETAMINOPHEN\PSEUDOEPHEDRINE HYDROCHLORIDE
     Indication: INFLUENZA
     Route: 048
     Dates: start: 20150318
  4. MUCOSOLVAN [Suspect]
     Active Substance: AMBROXOL HYDROCHLORIDE
     Indication: INFLUENZA
     Route: 048
     Dates: start: 20150312
  5. MUCODYNE [Suspect]
     Active Substance: CARBOCYSTEINE
     Indication: COUGH
     Route: 048
     Dates: start: 20150314
  6. DERSONE [Concomitant]
     Indication: STOMATITIS
     Route: 061
  7. MUCODYNE [Suspect]
     Active Substance: CARBOCYSTEINE
     Indication: PYREXIA
     Route: 065
  8. CLARITH [Suspect]
     Active Substance: CLARITHROMYCIN
     Indication: PYREXIA
     Route: 048
     Dates: start: 20150314

REACTIONS (1)
  - Oculomucocutaneous syndrome [Recovered/Resolved]

NARRATIVE: CASE EVENT DATE: 201503
